FAERS Safety Report 4391274-4 (Version None)
Quarter: 2004Q2

REPORT INFORMATION
  Report Type: 
  Country: None (occurrence: None)
  Receive Date: 20040621
  Receipt Date: 20031015
  Transmission Date: 20050107
  Serious: Yes (Hospitalization, Other)
  Sender: FDA-Public Use
  Company Number: USA-2003-0004935

PATIENT
  Age: 33 Year
  Sex: Female
  Weight: 53.5 kg

DRUGS (4)
  1. OXYCONTIN [Suspect]
     Indication: PAIN
     Dosage: 20 MG BID, ORAL
     Route: 048
     Dates: start: 19981117, end: 19981208
  2. PAMELOR [Concomitant]
  3. LORCET-HD [Concomitant]
  4. LODINE [Concomitant]

REACTIONS (13)
  - ANXIETY [None]
  - COGNITIVE DISORDER [None]
  - DEPRESSION [None]
  - DRUG ABUSER [None]
  - DRUG DEPENDENCE [None]
  - DRUG INEFFECTIVE [None]
  - DRUG WITHDRAWAL SYNDROME [None]
  - HEADACHE [None]
  - HYPERAESTHESIA [None]
  - NAUSEA [None]
  - PAIN [None]
  - URINARY TRACT INFECTION [None]
  - VOMITING [None]
